FAERS Safety Report 24645406 (Version 1)
Quarter: 2024Q4

REPORT INFORMATION
  Report Type: Spontaneous
  Country: US (occurrence: US)
  Receive Date: 20241121
  Receipt Date: 20241121
  Transmission Date: 20250115
  Serious: No
  Sender: ALVOGEN
  Company Number: US-ALVOGEN-2024094891

PATIENT
  Sex: Female

DRUGS (2)
  1. TERIPARATIDE [Suspect]
     Active Substance: TERIPARATIDE
     Indication: Osteoporosis
     Dosage: STRENGTH: 250 MCG/ML
     Route: 058
  2. Teriparatide Pen (Teva) [Concomitant]
     Indication: Product used for unknown indication

REACTIONS (2)
  - Dysphagia [Unknown]
  - Pharyngitis [Unknown]
